FAERS Safety Report 25041024 (Version 1)
Quarter: 2025Q1

REPORT INFORMATION
  Report Type: Spontaneous
  Country: VN (occurrence: VN)
  Receive Date: 20250305
  Receipt Date: 20250305
  Transmission Date: 20250408
  Serious: Yes (Hospitalization, Other)
  Sender: NOVARTIS
  Company Number: VN-002147023-NVSC2025VN035115

PATIENT
  Sex: Female

DRUGS (5)
  1. CYCLOSPORINE [Suspect]
     Active Substance: CYCLOSPORINE
     Indication: Prophylaxis against graft versus host disease
     Route: 065
     Dates: start: 201108
  2. CYCLOSPORINE [Suspect]
     Active Substance: CYCLOSPORINE
     Route: 065
     Dates: start: 201109, end: 201110
  3. METHOTREXATE [Suspect]
     Active Substance: METHOTREXATE
     Indication: Prophylaxis against graft versus host disease
     Route: 065
  4. CYCLOPHOSPHAMIDE [Concomitant]
     Active Substance: CYCLOPHOSPHAMIDE
     Indication: Transplant
     Route: 065
  5. LAPINE T-LYMPHOCYTE IMMUNE GLOBULIN [Concomitant]
     Active Substance: LAPINE T-LYMPHOCYTE IMMUNE GLOBULIN
     Indication: Transplant
     Route: 065

REACTIONS (11)
  - Graft versus host disease in gastrointestinal tract [Unknown]
  - Haemorrhage [Unknown]
  - Osteonecrosis [Unknown]
  - Heavy menstrual bleeding [Unknown]
  - Paroxysmal nocturnal haemoglobinuria [Unknown]
  - Aplastic anaemia [Unknown]
  - Cytomegalovirus infection reactivation [Unknown]
  - Anaemia [Unknown]
  - Infection [Unknown]
  - Arthralgia [Unknown]
  - Off label use [Unknown]

NARRATIVE: CASE EVENT DATE: 20110901
